FAERS Safety Report 10419667 (Version 1)
Quarter: 2014Q2

REPORT INFORMATION
  Report Type: Spontaneous
  Country: US (occurrence: None)
  Receive Date: 20140618
  Receipt Date: 20140618
  Transmission Date: 20141212
  Serious: Yes (Other)
  Sender: FDA-Public Use
  Company Number: 084446

PATIENT
  Age: 40 Year
  Sex: Female

DRUGS (2)
  1. LACOSAMIDE [Suspect]
     Dates: start: 201304
  2. TOPAMAX [Concomitant]

REACTIONS (1)
  - Suicidal ideation [None]
